FAERS Safety Report 17694383 (Version 1)
Quarter: 2020Q2

REPORT INFORMATION
  Report Type: Spontaneous
  Country: NL (occurrence: NL)
  Receive Date: 20200422
  Receipt Date: 20200422
  Transmission Date: 20200714
  Serious: Yes (Other)
  Sender: FDA-Public Use
  Company Number: NL-FRESENIUS KABI-FK202004016

PATIENT
  Age: 57 Year
  Sex: Male

DRUGS (5)
  1. DOBUTAMINE [Suspect]
     Active Substance: DOBUTAMINE HYDROCHLORIDE
     Indication: HYPOTENSION
     Route: 065
  2. MILRINONE (MANUFACTURER UNKOWN) [Suspect]
     Active Substance: MILRINONE
     Indication: HYPOTENSION
     Route: 065
  3. NORADRENALINE (MANUFACTURER UNKNOWN) [Suspect]
     Active Substance: NOREPINEPHRINE
     Indication: HYPOTENSION
     Route: 065
  4. VASOPRESSIN INJECTION (MANUFACTURER UNKNOWN) [Suspect]
     Active Substance: VASOPRESSIN
     Indication: HYPOTENSION
     Route: 065
  5. NITRIC OXIDE. [Concomitant]
     Active Substance: NITRIC OXIDE
     Indication: DRUG THERAPY
     Dosage: UNKNOWN
     Route: 055

REACTIONS (2)
  - Vasoplegia syndrome [Recovered/Resolved]
  - Renal failure [Recovered/Resolved]
